FAERS Safety Report 8395720-0 (Version None)
Quarter: 2012Q2

REPORT INFORMATION
  Report Type: 
  Country: None (occurrence: None)
  Receive Date: 20120530
  Receipt Date: 20120521
  Transmission Date: 20120825
  Serious: Yes (Hospitalization)
  Sender: FDA-Public Use
  Company Number: US-JNJFOC-20120513146

PATIENT
  Sex: Female
  Weight: 73.48 kg

DRUGS (8)
  1. REMICADE [Suspect]
     Route: 042
     Dates: start: 20060411
  2. REMICADE [Suspect]
     Indication: CROHN'S DISEASE
     Route: 042
     Dates: start: 20081110
  3. ANTIBIOTICS [Concomitant]
  4. ANTIHISTAMINES [Concomitant]
     Dates: start: 20081110
  5. ANTIHISTAMINES [Concomitant]
     Indication: PREMEDICATION
     Dates: start: 20060411
  6. ACETAMINOPHEN [Concomitant]
     Dates: start: 20060411
  7. HUMIRA [Concomitant]
  8. ACETAMINOPHEN [Concomitant]
     Indication: PREMEDICATION
     Dates: start: 20081110

REACTIONS (2)
  - ANAL FISTULA [None]
  - RECTAL ABSCESS [None]
